FAERS Safety Report 5943798-3 (Version None)
Quarter: 2008Q4

REPORT INFORMATION
  Report Type: 
  Country: None (occurrence: None)
  Receive Date: 20081106
  Receipt Date: 20081024
  Transmission Date: 20090506
  Serious: Yes (Other)
  Sender: FDA-Public Use
  Company Number: AU-BRISTOL-MYERS SQUIBB COMPANY-14382832

PATIENT
  Age: 82 Year
  Sex: Male

DRUGS (1)
  1. KARVEZIDE [Suspect]
     Dates: start: 20050101

REACTIONS (1)
  - NORMOCHROMIC NORMOCYTIC ANAEMIA [None]
